FAERS Safety Report 8637105 (Version 2)
Quarter: 2013Q3

REPORT INFORMATION
  Report Type: Spontaneous
  Country: US (occurrence: US)
  Receive Date: 20120627
  Receipt Date: 20130808
  Transmission Date: 20140515
  Serious: Yes (Other)
  Sender: FDA-Public Use
  Company Number: US-ASTRAZENECA-2012SE36486

PATIENT
  Age: 55 Year
  Sex: Male
  Weight: 77.1 kg

DRUGS (7)
  1. NEXIUM [Suspect]
     Indication: GASTROOESOPHAGEAL REFLUX DISEASE
     Dosage: ONCE DAY
     Route: 048
     Dates: start: 2003, end: 2010
  2. ZANTAC [Concomitant]
     Dosage: TWO TIMES IN DAY
     Dates: start: 200809
  3. TUMS [Concomitant]
     Dates: start: 199601, end: 200001
  4. FUROSEMIDE [Concomitant]
  5. ENALAPRIL [Concomitant]
  6. METOPROLOL [Concomitant]
  7. SIMVASTATIN [Concomitant]

REACTIONS (5)
  - Cerebrovascular accident [Unknown]
  - Hip fracture [Unknown]
  - Bone disorder [Unknown]
  - Multiple fractures [Unknown]
  - Osteoporosis [Unknown]
